FAERS Safety Report 21782776 (Version 1)
Quarter: 2022Q4

REPORT INFORMATION
  Report Type: Spontaneous
  Country: US (occurrence: US)
  Receive Date: 20221227
  Receipt Date: 20221227
  Transmission Date: 20230113
  Serious: Yes (Other)
  Sender: FDA-Public Use
  Company Number: US-SANOFI-01416782

PATIENT
  Age: 71 Year
  Sex: Female

DRUGS (1)
  1. LANTUS SOLOSTAR [Suspect]
     Active Substance: INSULIN GLARGINE
     Indication: Type 2 diabetes mellitus
     Dosage: 45 U

REACTIONS (9)
  - Monoplegia [Unknown]
  - Muscular weakness [Unknown]
  - Ligament sprain [Unknown]
  - Hypoaesthesia [Unknown]
  - Paraesthesia [Unknown]
  - Chronic obstructive pulmonary disease [Unknown]
  - Sensory loss [Unknown]
  - Shoulder arthroplasty [Unknown]
  - Procedural complication [Unknown]
